FAERS Safety Report 14353662 (Version 1)
Quarter: 2018Q1

REPORT INFORMATION
  Report Type: Other
  Country: FR (occurrence: FR)
  Receive Date: 20180105
  Receipt Date: 20180105
  Transmission Date: 20180509
  Serious: Yes (Hospitalization, Other)
  Sender: FDA-Public Use
  Company Number: FR-MACLEODS PHARMACEUTICALS US LTD-MAC2017008240

PATIENT

DRUGS (3)
  1. DOLIPRANE [Concomitant]
     Active Substance: ACETAMINOPHEN
     Indication: SCIATICA
     Dosage: 4000 MG, QD
     Route: 048
     Dates: start: 20170729
  2. TRAMADOL HYDROCHLORIDE. [Suspect]
     Active Substance: TRAMADOL HYDROCHLORIDE
     Indication: SCIATICA
     Dosage: 300 MG, QD
     Route: 048
     Dates: start: 20170729, end: 20170804
  3. CELECOXIB. [Suspect]
     Active Substance: CELECOXIB
     Indication: SCIATICA
     Dosage: 100 MG, QD
     Route: 048
     Dates: start: 20170729, end: 20170804

REACTIONS (2)
  - Off label use [Unknown]
  - Sepsis [Recovered/Resolved]

NARRATIVE: CASE EVENT DATE: 20170803
